FAERS Safety Report 14071746 (Version 1)
Quarter: 2017Q4

REPORT INFORMATION
  Report Type: Spontaneous
  Country: US (occurrence: US)
  Receive Date: 20171010
  Receipt Date: 20171010
  Transmission Date: 20180321
  Serious: Yes (Death, Life-Threatening, Disabling)
  Sender: FDA-Public Use
  Company Number: None

PATIENT
  Age: 1 Year
  Sex: Male

DRUGS (9)
  1. AMOXICILLIN. [Concomitant]
     Active Substance: AMOXICILLIN
  2. INFANT SUPPOSITORY [Concomitant]
  3. MOMMY^S BLISS CONSTIPATION EASE PROBIOTICS [Concomitant]
  4. POLYETHYLENE GLYCOL 3350 NF [Suspect]
     Active Substance: POLYETHYLENE GLYCOL 3350
     Indication: CONSTIPATION
     Dosage: QUANTITY:1 HALF CAPFUL;?
     Route: 048
     Dates: start: 20161015, end: 20161129
  5. AUGMENTIN [Concomitant]
     Active Substance: AMOXICILLIN\CLAVULANATE POTASSIUM
  6. PROPOFOL. [Concomitant]
     Active Substance: PROPOFOL
  7. ESSENTIAL OILS. [Concomitant]
     Active Substance: ESSENTIAL OILS
  8. TYLENOL [Concomitant]
     Active Substance: ACETAMINOPHEN
  9. IBUPROFEN. [Concomitant]
     Active Substance: IBUPROFEN

REACTIONS (3)
  - Gait disturbance [None]
  - Seizure [None]
  - Affective disorder [None]

NARRATIVE: CASE EVENT DATE: 20161129
